FAERS Safety Report 6264201-2 (Version None)
Quarter: 2009Q3

REPORT INFORMATION
  Report Type: 
  Country: None (occurrence: None)
  Receive Date: 20090706
  Receipt Date: 20090423
  Transmission Date: 20100115
  Serious: Yes (Hospitalization)
  Sender: FDA-Public Use
  Company Number: 629385

PATIENT
  Sex: Female

DRUGS (1)
  1. CELLCEPT [Suspect]
     Indication: LUNG TRANSPLANT
     Dosage: 2000 MG  2 PER DAY

REACTIONS (1)
  - INCORRECT DOSE ADMINISTERED [None]
